FAERS Safety Report 19660334 (Version 1)
Quarter: 2021Q3

REPORT INFORMATION
  Report Type: Spontaneous
  Country: US (occurrence: US)
  Receive Date: 20210805
  Receipt Date: 20210805
  Transmission Date: 20211014
  Serious: No
  Sender: FDA-Public Use
  Company Number: US-GLAXOSMITHKLINE-US2021162755

PATIENT
  Age: 6 Year
  Sex: Female

DRUGS (2)
  1. FLONASE ALLERGY RELIEF [Suspect]
     Active Substance: FLUTICASONE PROPIONATE
     Indication: UPPER-AIRWAY COUGH SYNDROME
     Dosage: 1 PUFF(S), QD, 1 SPRAY EACH NOSTRIL
     Route: 055
     Dates: start: 202102, end: 202103
  2. FLONASE ALLERGY RELIEF [Suspect]
     Active Substance: FLUTICASONE PROPIONATE
     Indication: RHINITIS

REACTIONS (2)
  - Off label use [Unknown]
  - Tic [Recovered/Resolved]
